FAERS Safety Report 9408863 (Version 1)
Quarter: 2013Q3

REPORT INFORMATION
  Report Type: Spontaneous
  Country: US (occurrence: US)
  Receive Date: 20130719
  Receipt Date: 20130719
  Transmission Date: 20140515
  Serious: No
  Sender: FDA-Public Use
  Company Number: US-B.I. PHARMACEUTICALS,INC./RIDGEFIELD-2013-BI-20424BP

PATIENT
  Age: 72 Year
  Sex: Female
  Weight: 86 kg

DRUGS (3)
  1. COMBIVENT [Suspect]
     Indication: ASTHMA
     Dosage: STRENGTH: 20 MCG / 100 MCG; DAILY DOSE: 60 MCG/309 MCG
     Route: 055
     Dates: start: 20130620
  2. COMBIVENT [Suspect]
     Indication: ASTHMA
     Dosage: STRENGTH: 18 MCG / 103 MCG; DAILY DOSE: 54 MCG/300 MCG
     Route: 055
     Dates: start: 2008, end: 20130619
  3. ALEVE [Concomitant]
     Indication: ARTHRITIS
     Route: 048
     Dates: start: 2008

REACTIONS (5)
  - Dyspnoea [Unknown]
  - Off label use [Recovered/Resolved]
  - Off label use [Unknown]
  - Incorrect drug administration rate [Recovered/Resolved]
  - Incorrect drug administration rate [Unknown]
